FAERS Safety Report 4952184-4 (Version None)
Quarter: 2006Q1

REPORT INFORMATION
  Report Type: 
  Country: None (occurrence: None)
  Receive Date: 20060323
  Receipt Date: 20060313
  Transmission Date: 20060701
  Serious: Yes (Hospitalization)
  Sender: FDA-Public Use
  Company Number: PHHO2006US04531

PATIENT
  Age: 79 Year
  Sex: Female
  Weight: 122.5 kg

DRUGS (12)
  1. NATEGLINIDE [Suspect]
     Indication: GLUCOSE TOLERANCE IMPAIRED
     Dosage: LEVEL 1
     Route: 048
     Dates: start: 20020611
  2. NATEGLINIDE [Suspect]
     Dosage: 60 MG AC, LEVEL 2
     Route: 048
     Dates: end: 20060301
  3. VALSARTAN [Suspect]
     Indication: CARDIOVASCULAR DISORDER
     Dosage: LEVEL 1
     Route: 048
     Dates: start: 20020611
  4. VALSARTAN [Suspect]
     Dosage: LEVEL 2
     Route: 048
     Dates: end: 20060301
  5. ATENOLOL [Concomitant]
     Indication: HYPERTENSION
  6. ASPIRIN [Concomitant]
     Indication: PROPHYLAXIS
  7. VASOTEC RPD [Concomitant]
     Indication: HYPERTENSION
  8. LISINOPRIL [Concomitant]
  9. MACROBID [Concomitant]
  10. TOPROL-XL [Concomitant]
  11. TRICOR [Concomitant]
  12. NORTRIPTYLINE HCL [Concomitant]

REACTIONS (12)
  - ATRIAL FLUTTER [None]
  - CARDIAC ABLATION [None]
  - CARDIAC MURMUR [None]
  - DISEASE PROGRESSION [None]
  - DIZZINESS [None]
  - DYSPNOEA [None]
  - FEELING ABNORMAL [None]
  - FIBRIN D DIMER INCREASED [None]
  - HEART RATE INCREASED [None]
  - INJECTION SITE ERYTHEMA [None]
  - INJECTION SITE OEDEMA [None]
  - PALPITATIONS [None]
